FAERS Safety Report 6359944-6 (Version None)
Quarter: 2009Q3

REPORT INFORMATION
  Report Type: 
  Country: None (occurrence: None)
  Receive Date: 20090917
  Receipt Date: 20090910
  Transmission Date: 20100115
  Serious: Yes (Death)
  Sender: FDA-Public Use
  Company Number: ES-PFIZER INC-2009244513

PATIENT
  Age: 61 Year

DRUGS (3)
  1. FARMORUBICINA [Suspect]
     Indication: OESOPHAGEAL CARCINOMA
     Dosage: 64 MG DAILY
     Dates: start: 20081125, end: 20081125
  2. CISPLATIN [Suspect]
     Indication: OESOPHAGEAL CARCINOMA
     Dosage: 80 MG DAILY
     Route: 042
     Dates: start: 20081125, end: 20081125
  3. XELODA [Suspect]
     Indication: OESOPHAGEAL CARCINOMA
     Dosage: 2 G DAILY
     Dates: start: 20081125, end: 20081130

REACTIONS (3)
  - GASTROINTESTINAL TOXICITY [None]
  - MUCOSAL INFLAMMATION [None]
  - NEUTROPENIA [None]
